FAERS Safety Report 17580940 (Version 1)
Quarter: 2020Q1

REPORT INFORMATION
  Report Type: Spontaneous
  Country: None (occurrence: JP)
  Receive Date: 20200325
  Receipt Date: 20200325
  Transmission Date: 20200409
  Serious: Yes (Hospitalization)
  Sender: FDA-Public Use
  Company Number: JP-TEVA-2020-JP-1208883

PATIENT
  Age: 61 Year
  Sex: Female

DRUGS (2)
  1. PREDNISOLONE. [Suspect]
     Active Substance: PREDNISOLONE
     Indication: AUTOIMMUNE HEPATITIS
     Dosage: 20 MILLIGRAM DAILY; STARTED AT 20MG/DAY AND THEN GRADUALLY TAPERED DOWN TO 2.5 MG/DAY OVER A PERIOD
     Route: 048
  2. PREDNISOLONE. [Suspect]
     Active Substance: PREDNISOLONE
     Indication: AUTOIMMUNE HEPATITIS
     Dosage: 2.5 MILLIGRAM DAILY;
     Route: 048

REACTIONS (2)
  - Systemic lupus erythematosus [Recovering/Resolving]
  - Withdrawal syndrome [Recovering/Resolving]
